FAERS Safety Report 21539579 (Version 1)
Quarter: 2022Q4

REPORT INFORMATION
  Report Type: Report from Study
  Country: US (occurrence: US)
  Receive Date: 20221102
  Receipt Date: 20221102
  Transmission Date: 20230113
  Serious: Yes (Hospitalization)
  Sender: FDA-Public Use
  Company Number: US-ABBVIE-4177850

PATIENT
  Sex: Female

DRUGS (20)
  1. VENCLEXTA [Suspect]
     Active Substance: VENETOCLAX
     Indication: Acute lymphocytic leukaemia
     Dosage: FORM STRENGTH 100MG
     Route: 048
  2. LORAZEPAM [Concomitant]
     Active Substance: LORAZEPAM
     Indication: Nausea
     Dosage: 1 TABS ORAL EVRY 4 HR; AS NEEDED
  3. MELATONIN [Concomitant]
     Active Substance: MELATONIN
     Indication: Product used for unknown indication
  4. PANTOPRAZOLE [Concomitant]
     Active Substance: PANTOPRAZOLE
     Indication: Product used for unknown indication
     Dosage: 1 TABS ORAL BID
  5. MINERALS\VITAMINS [Concomitant]
     Active Substance: MINERALS\VITAMINS
     Indication: Product used for unknown indication
     Dosage: 1 TABS ORAL DAILY
  6. Depo-Provera Contraceptive [Concomitant]
     Indication: Product used for unknown indication
     Dosage: 1ML EVERY 3 MONTHS?FORM STRENGTH: 150MG
     Route: 030
  7. Trazodone TAB [Concomitant]
     Indication: Product used for unknown indication
     Dosage: 1 TABS DAILY AT BEDTIME?FORM STRENGTH  50MG
     Route: 048
  8. Acyclovir TAB [Concomitant]
     Indication: Product used for unknown indication
     Dosage: FORM STRENGTH -800MG
     Route: 048
  9. PENTAMIDINE [Concomitant]
     Active Substance: PENTAMIDINE
     Indication: Product used for unknown indication
     Dosage: NEBULIZED INHALATION EVERY 4 WEEK, LAST 25-AUG-2022?FORM STRENGTH 300MG
     Route: 055
  10. SODIUM CHLORIDE [Concomitant]
     Active Substance: SODIUM CHLORIDE
     Indication: Product used for unknown indication
     Dosage: 10-20BFLUSH AS NEEDED
  11. ACETAMINOPHEN [Concomitant]
     Active Substance: ACETAMINOPHEN
     Indication: Product used for unknown indication
     Dosage: EVERY 4 HOURS; AS NEEDED
     Route: 048
     Dates: start: 20221017
  12. PROCHLORPERAZINE [Concomitant]
     Active Substance: PROCHLORPERAZINE
     Indication: Nausea
     Dosage: EVERY 4 HR
  13. EPINEPHRINE [Concomitant]
     Active Substance: EPINEPHRINE
     Indication: Anaphylactic reaction
     Route: 030
  14. ENOXAPARIN [Concomitant]
     Active Substance: ENOXAPARIN
     Indication: Product used for unknown indication
     Dosage: 0.4ML EVERY 12 HR?FORM STRENGTH 40MG
     Route: 058
  15. HEPARIN [Concomitant]
     Active Substance: HEPARIN SODIUM
     Indication: Product used for unknown indication
     Route: 042
     Dates: start: 20220627
  16. ZYPREXA [Concomitant]
     Active Substance: OLANZAPINE
     Indication: Nausea
     Dosage: 2 TABS ORAL DAILY AT BEDTIME?FORM STRENTH 2.5MG
     Route: 048
  17. VITAMIN B12 [Concomitant]
     Active Substance: CYANOCOBALAMIN
     Indication: Product used for unknown indication
     Dosage: TABLET-1000MCG
  18. Floricet TABLET [Concomitant]
     Indication: Headache
     Dosage: 1 TABS ORAL EVERY 4 HR AS NEEDED
     Route: 048
  19. Cholecalciferol Tablet 4000 IU [Concomitant]
     Indication: Product used for unknown indication
     Dosage: 1 TABS ORAL DAILY
  20. ALTEPLASE [Concomitant]
     Active Substance: ALTEPLASE
     Indication: Product used for unknown indication
     Route: 042
     Dates: start: 20220627

REACTIONS (2)
  - Hospitalisation [Unknown]
  - Off label use [Unknown]
